FAERS Safety Report 9523950 (Version 1)
Quarter: 2013Q3

REPORT INFORMATION
  Report Type: Spontaneous
  Country: DK (occurrence: None)
  Receive Date: 20130912
  Receipt Date: 20130912
  Transmission Date: 20140515
  Serious: Yes (Life-Threatening)
  Sender: FDA-Public Use
  Company Number: FK201304148

PATIENT
  Age: 44 Year
  Sex: Male

DRUGS (1)
  1. THIAMINE [Suspect]
     Indication: ALCOHOL POISONING
     Route: 042

REACTIONS (8)
  - Anaphylactic shock [None]
  - Cardiac arrest [None]
  - Unresponsive to stimuli [None]
  - Respiration abnormal [None]
  - Pulseless electrical activity [None]
  - Atrial fibrillation [None]
  - Bundle branch block right [None]
  - Rib fracture [None]
